FAERS Safety Report 7643111-X (Version None)
Quarter: 2011Q3

REPORT INFORMATION
  Report Type: 
  Country: None (occurrence: None)
  Receive Date: 20110729
  Receipt Date: 20110720
  Transmission Date: 20111222
  Serious: Yes (Other)
  Sender: FDA-Public Use
  Company Number: US-ASTRAZENECA-2008UW12259

PATIENT
  Age: 454 Month
  Sex: Female
  Weight: 72.1 kg

DRUGS (20)
  1. SEROQUEL [Suspect]
     Indication: BIPOLAR I DISORDER
     Route: 048
     Dates: start: 19981006
  2. ABILIFY [Concomitant]
  3. WELLBUTRIN [Concomitant]
     Dates: start: 20011001, end: 20020201
  4. SEROQUEL [Suspect]
     Route: 048
     Dates: start: 20000510
  5. GEODON [Concomitant]
  6. HALDOL [Concomitant]
     Dates: start: 20040101
  7. ZYPREXA [Concomitant]
  8. TRAZODONE HCL [Concomitant]
     Dates: start: 20030101, end: 20050101
  9. WELLBUTRIN [Concomitant]
     Dates: start: 19981006
  10. SEROQUEL [Suspect]
     Indication: BIPOLAR DISORDER
     Route: 048
     Dates: start: 19981006
  11. SEROQUEL [Suspect]
     Dosage: 800-1000 MG
     Route: 048
     Dates: start: 20000609
  12. ZOLOFT [Concomitant]
     Dates: start: 20030701, end: 20040701
  13. KLONOPIN [Concomitant]
     Dates: start: 19981006
  14. LAMICTAL [Concomitant]
     Dosage: 25 MG QAM ,2 QHS
     Dates: start: 20000510
  15. NEURONTIN [Concomitant]
     Dosage: 600 MG-800 MG
     Dates: start: 20000510
  16. DEPAKOTE [Concomitant]
     Dates: start: 19981006
  17. SEROQUEL [Suspect]
     Route: 048
     Dates: start: 20000510
  18. SEROQUEL [Suspect]
     Dosage: 800-1000 MG
     Route: 048
     Dates: start: 20000609
  19. RISPERDAL [Concomitant]
  20. ATIVAN [Concomitant]
     Dates: end: 19981006

REACTIONS (5)
  - TYPE 2 DIABETES MELLITUS [None]
  - REPRODUCTIVE TRACT DISORDER [None]
  - BLOOD CHOLESTEROL INCREASED [None]
  - UTERINE DISORDER [None]
  - NEUROPATHY PERIPHERAL [None]
